FAERS Safety Report 5610938-5 (Version None)
Quarter: 2008Q1

REPORT INFORMATION
  Report Type: 
  Country: None (occurrence: None)
  Receive Date: 20080128
  Receipt Date: 20080116
  Transmission Date: 20080703
  Serious: Yes (Hospitalization)
  Sender: FDA-Public Use
  Company Number: 2008-00090

PATIENT
  Age: 68 Year
  Sex: Female
  Weight: 56 kg

DRUGS (10)
  1. VELCADE [Suspect]
     Indication: MULTIPLE MYELOMA
     Dosage: 1.30 MG/M2, INTRAVENOUS
     Route: 042
     Dates: start: 20070814, end: 20080108
  2. DOXIL [Suspect]
     Indication: MULTIPLE MYELOMA
     Dosage: 20.00 MG, ORAL
     Route: 048
     Dates: start: 20070814, end: 20080108
  3. ACYCLOVIR [Concomitant]
  4. CALCIUM CARBONATE (CALCIUM CARBONATE) [Concomitant]
  5. THALIDOMIDE [Suspect]
     Indication: MULTIPLE MYELOMA
     Dosage: 200.00 MG/M2, INTRAVENOUS
     Route: 042
     Dates: start: 20070814, end: 20080108
  6. COLACE (DOCUSTATE SODIUM) [Concomitant]
  7. COMPAZINE (PROCHLORPERAZINE EDISYLATE) [Concomitant]
  8. SENOKOT [Concomitant]
  9. ACETAMINOPHEN [Concomitant]
  10. COUMADIN [Concomitant]

REACTIONS (6)
  - ANAEMIA [None]
  - HYPOALBUMINAEMIA [None]
  - HYPOCALCAEMIA [None]
  - HYPONATRAEMIA [None]
  - INTERSTITIAL LUNG DISEASE [None]
  - LYMPHOPENIA [None]
